FAERS Safety Report 5892284-8 (Version None)
Quarter: 2008Q3

REPORT INFORMATION
  Report Type: 
  Country: None (occurrence: None)
  Receive Date: 20080919
  Receipt Date: 20080725
  Transmission Date: 20090109
  Serious: Yes (Hospitalization)
  Sender: FDA-Public Use
  Company Number: US024338

PATIENT
  Sex: Female

DRUGS (9)
  1. ACTIQ [Suspect]
     Indication: BACK PAIN
     Dosage: 400 UG BUCCAL
     Route: 002
     Dates: start: 20030626, end: 20031001
  2. ACTIQ [Suspect]
     Indication: BACK PAIN
     Dosage: 400 UG BUCCAL
     Route: 002
     Dates: start: 20031117, end: 20031208
  3. ACTIQ [Suspect]
     Indication: BACK PAIN
     Dosage: 600 UG PRN BUCCAL
     Route: 002
     Dates: start: 20031209
  4. KADIAN [Suspect]
     Dates: end: 20031001
  5. PERCOCET [Suspect]
     Indication: BREAKTHROUGH PAIN
     Dosage: 5 MG OXYCODONE/325MG ACETAMINOPHEN PRN ORAL
     Route: 048
     Dates: start: 20030605
  6. DURAGESIC-100 [Concomitant]
  7. GABITRIL [Concomitant]
  8. TOPAMAX [Concomitant]
  9. LEXAPRO [Concomitant]

REACTIONS (11)
  - ATAXIA [None]
  - CONVULSION [None]
  - DENTAL CARIES [None]
  - DEPENDENCE [None]
  - DEPRESSION [None]
  - DRUG INTOLERANCE [None]
  - DRUG WITHDRAWAL SYNDROME [None]
  - FALL [None]
  - HALLUCINATION, AUDITORY [None]
  - OVERDOSE [None]
  - TOOTH LOSS [None]
